FAERS Safety Report 6239630-3 (Version None)
Quarter: 2009Q2

REPORT INFORMATION
  Report Type: 
  Country: None (occurrence: None)
  Receive Date: 20090619
  Receipt Date: 20090605
  Transmission Date: 20091009
  Serious: Yes (Hospitalization)
  Sender: FDA-Public Use
  Company Number: 6052073

PATIENT
  Age: 72 Year
  Sex: Female

DRUGS (5)
  1. LEVOTHYROXINE SODIUM [Suspect]
     Indication: HYPOTHYROIDISM
     Dosage: 7.5 MCG
     Route: 048
     Dates: start: 20020101, end: 20090502
  2. LANOXIN [Suspect]
     Indication: CARDIAC VALVE DISEASE
     Dosage: 0.125 MG
     Route: 048
     Dates: start: 20020101, end: 20090502
  3. LASIX [Suspect]
     Indication: CARDIAC DISORDER
     Dosage: 25 MG
     Route: 048
     Dates: start: 20020101, end: 20090502
  4. ALDACTONE [Suspect]
     Indication: CARDIAC DISORDER
     Dosage: 50 MG
     Dates: start: 20020101, end: 20090502
  5. CORTISONE ACETATE [Suspect]
     Indication: HYPOPITUITARISM
     Dosage: 43.8 MG
     Route: 048
     Dates: start: 20020101, end: 20090502

REACTIONS (4)
  - ASTHENIA [None]
  - BLOOD CREATININE INCREASED [None]
  - NAUSEA [None]
  - VOMITING [None]
